FAERS Safety Report 25411443 (Version 2)
Quarter: 2025Q2

REPORT INFORMATION
  Report Type: Spontaneous
  Country: US (occurrence: US)
  Receive Date: 20250609
  Receipt Date: 20250619
  Transmission Date: 20250717
  Serious: Yes (Death)
  Sender: NOVARTIS
  Company Number: US-002147023-NVSC2025US091442

PATIENT
  Sex: Male

DRUGS (2)
  1. PROMACTA [Suspect]
     Active Substance: ELTROMBOPAG OLAMINE
     Indication: Immune thrombocytopenia
     Dosage: 25 MG, QD
     Route: 048
     Dates: start: 202205
  2. PROMACTA [Suspect]
     Active Substance: ELTROMBOPAG OLAMINE
     Route: 048
     Dates: start: 20220422

REACTIONS (5)
  - Colon cancer metastatic [Fatal]
  - Metastases to lung [Fatal]
  - Metastases to liver [Fatal]
  - Brain stem syndrome [Fatal]
  - Metastases to central nervous system [Fatal]
